FAERS Safety Report 25638204 (Version 1)
Quarter: 2025Q3

REPORT INFORMATION
  Report Type: Spontaneous
  Country: CN (occurrence: CN)
  Receive Date: 20250804
  Receipt Date: 20250804
  Transmission Date: 20251020
  Serious: Yes (Hospitalization)
  Sender: BAXTER
  Company Number: None

PATIENT
  Age: 60 Year
  Sex: Female
  Weight: 53.5 kg

DRUGS (5)
  1. CYCLOPHOSPHAMIDE [Suspect]
     Active Substance: CYCLOPHOSPHAMIDE
     Indication: Breast cancer female
     Dosage: 800 MG, QD, (LYOPHILIZED POWDER)
     Route: 041
     Dates: start: 20250701, end: 20250701
  2. SODIUM CHLORIDE [Suspect]
     Active Substance: SODIUM CHLORIDE
     Dosage: 0.9% NS 50 ML, QD (NEEDLE) WITH CYCLOPHOSPHAMIDE
     Route: 041
     Dates: start: 20250701, end: 20250701
  3. SODIUM CHLORIDE [Suspect]
     Active Substance: SODIUM CHLORIDE
     Dosage: 0.9% NS 250 ML, QD (NEEDLE) WITH DOECTAXEL
     Route: 041
     Dates: start: 20250701, end: 20250701
  4. DOCETAXEL [Suspect]
     Active Substance: DOCETAXEL
     Indication: Breast cancer female
     Dosage: 110 MG, QD
     Route: 041
     Dates: start: 20250701, end: 20250701
  5. TRASTUZUMAB [Suspect]
     Active Substance: TRASTUZUMAB
     Indication: Breast cancer female
     Dosage: 600 MG, QD
     Route: 058
     Dates: start: 20250630, end: 20250630

REACTIONS (3)
  - Urticarial vasculitis [Recovering/Resolving]
  - Vasculitic rash [Recovered/Resolved]
  - Pruritus [Recovering/Resolving]

NARRATIVE: CASE EVENT DATE: 20250714
